FAERS Safety Report 9028113 (Version 1)
Quarter: 2013Q1

REPORT INFORMATION
  Report Type: Spontaneous
  Country: US (occurrence: None)
  Receive Date: 20130114
  Receipt Date: 20130114
  Transmission Date: 20140127
  Serious: Yes (Life-Threatening)
  Sender: FDA-Public Use
  Company Number: None

PATIENT
  Age: 57 Year
  Sex: Male
  Weight: 75 kg

DRUGS (1)
  1. MONTELUKAST [Suspect]
     Route: 048
     Dates: start: 20120213

REACTIONS (3)
  - Asthma [None]
  - No therapeutic response [None]
  - Product substitution issue [None]
